FAERS Safety Report 6510509-2 (Version None)
Quarter: 2009Q4

REPORT INFORMATION
  Report Type: 
  Country: None (occurrence: None)
  Receive Date: 20091222
  Receipt Date: 20091216
  Transmission Date: 20100525
  Serious: Yes (Other)
  Sender: FDA-Public Use
  Company Number: US-MERCK-0912USA02143

PATIENT
  Age: 16 Year
  Sex: Male

DRUGS (4)
  1. SINGULAIR [Suspect]
     Indication: ASTHMA
     Route: 048
     Dates: start: 20091104, end: 20091215
  2. BENTYL [Concomitant]
     Route: 065
  3. ZYRTEC [Concomitant]
     Route: 065
  4. PROVENTIL [Concomitant]
     Route: 065

REACTIONS (3)
  - AGGRESSION [None]
  - MENTAL STATUS CHANGES [None]
  - SUICIDAL IDEATION [None]
